FAERS Safety Report 22366077 (Version 1)
Quarter: 2023Q2

REPORT INFORMATION
  Report Type: Spontaneous
  Country: FR (occurrence: FR)
  Receive Date: 20230525
  Receipt Date: 20230525
  Transmission Date: 20230721
  Serious: Yes (Death, Other)
  Sender: FDA-Public Use
  Company Number: None

PATIENT
  Age: 59 Year
  Sex: Male
  Weight: 54 kg

DRUGS (2)
  1. SOVALDI [Suspect]
     Active Substance: SOFOSBUVIR
     Indication: Hepatitis C
     Dosage: 400 MG, QD
     Route: 048
     Dates: start: 20150201, end: 201508
  2. DAKLINZA [Suspect]
     Active Substance: DACLATASVIR
     Indication: Hepatitis C
     Dosage: 60 MG, QD
     Route: 048
     Dates: start: 20150201, end: 201508

REACTIONS (1)
  - Acute myeloid leukaemia [Fatal]

NARRATIVE: CASE EVENT DATE: 20160901
